FAERS Safety Report 4454756-2 (Version None)
Quarter: 2004Q3

REPORT INFORMATION
  Report Type: 
  Country: None (occurrence: None)
  Receive Date: 20040921
  Receipt Date: 20040910
  Transmission Date: 20050211
  Serious: Yes (Hospitalization)
  Sender: FDA-Public Use
  Company Number: JP-JNJFOC-20040902917

PATIENT
  Age: 61 Year
  Sex: Male

DRUGS (15)
  1. OFLOCET [Suspect]
     Indication: DRUG USE FOR UNKNOWN INDICATION
     Route: 042
     Dates: start: 20040814, end: 20040818
  2. ZOVIRAX [Suspect]
     Indication: DRUG USE FOR UNKNOWN INDICATION
     Route: 042
     Dates: start: 20040810, end: 20040816
  3. TIBERAL [Concomitant]
     Route: 042
     Dates: start: 20040814, end: 20040823
  4. CEFTRIAXONE [Concomitant]
     Route: 042
     Dates: start: 20040814, end: 20040823
  5. NEORAL [Concomitant]
     Route: 049
     Dates: start: 20040624
  6. SANDIMMUNE [Concomitant]
     Route: 042
     Dates: start: 20040814, end: 20040818
  7. SOLU-MEDROL [Concomitant]
     Route: 042
     Dates: start: 20040814, end: 20040816
  8. CORTANCYL [Concomitant]
     Route: 049
     Dates: start: 20040810
  9. CORTANCYL [Concomitant]
     Route: 049
     Dates: start: 20040810
  10. ZOLOFT [Concomitant]
     Route: 049
     Dates: start: 20040810, end: 20040813
  11. PRAVASTATIN [Concomitant]
     Route: 049
  12. NEURONTIN [Concomitant]
     Route: 049
     Dates: start: 20040810
  13. BISOPROLOL FUMARATE [Concomitant]
     Route: 049
     Dates: start: 20040810
  14. AMLOR [Concomitant]
     Route: 049
     Dates: start: 20040816
  15. XATRAL [Concomitant]
     Route: 049
     Dates: start: 20040810

REACTIONS (3)
  - BLOOD AMYLASE INCREASED [None]
  - LIPASE INCREASED [None]
  - RENAL FAILURE ACUTE [None]
